FAERS Safety Report 7068080-5 (Version None)
Quarter: 2010Q4

REPORT INFORMATION
  Report Type: 
  Country: None (occurrence: None)
  Receive Date: 20101028
  Receipt Date: 20101014
  Transmission Date: 20110411
  Serious: Yes (Other)
  Sender: FDA-Public Use
  Company Number: PHHY2010US69576

PATIENT
  Age: 80 Year
  Sex: Female

DRUGS (2)
  1. GENTEAL PM LUBRICANT EYE OINTMENT [Suspect]
     Route: 047
  2. GENTEAL (NVO) [Suspect]
     Route: 047

REACTIONS (1)
  - VISUAL ACUITY REDUCED [None]
